FAERS Safety Report 7089932-6 (Version None)
Quarter: 2010Q4

REPORT INFORMATION
  Report Type: 
  Country: None (occurrence: None)
  Receive Date: 20101108
  Receipt Date: 20101026
  Transmission Date: 20110411
  Serious: Yes (Other)
  Sender: FDA-Public Use
  Company Number: US-BRISTOL-MYERS SQUIBB COMPANY-15341662

PATIENT
  Age: 58 Year
  Sex: Female
  Weight: 77 kg

DRUGS (4)
  1. ABILIFY [Suspect]
     Indication: BIPOLAR I DISORDER
     Route: 048
     Dates: start: 20101006
  2. WELLBUTRIN [Concomitant]
  3. LAMICTAL [Concomitant]
  4. XANAX [Concomitant]

REACTIONS (8)
  - DIZZINESS [None]
  - METAMORPHOPSIA [None]
  - MIGRAINE [None]
  - NAUSEA [None]
  - PHOTOSENSITIVITY REACTION [None]
  - PRESYNCOPE [None]
  - SCOTOMA [None]
  - VISION BLURRED [None]
